FAERS Safety Report 16796142 (Version 1)
Quarter: 2019Q3

REPORT INFORMATION
  Report Type: Report from Study
  Country: CA (occurrence: CA)
  Receive Date: 20190911
  Receipt Date: 20190911
  Transmission Date: 20191005
  Serious: Yes (Other)
  Sender: FDA-Public Use
  Company Number: CA-TEVA-2019-CA-1106657

PATIENT
  Age: 76 Year
  Sex: Female

DRUGS (5)
  1. MEMANTINE. [Suspect]
     Active Substance: MEMANTINE
     Indication: MIGRAINE
     Route: 065
  2. BOTULINUM TOXIN TYPE A [Suspect]
     Active Substance: BOTULINUM TOXIN TYPE A
     Indication: MIGRAINE
     Route: 065
  3. CANDESARTAN CILEXETIL. [Suspect]
     Active Substance: CANDESARTAN CILEXETIL
     Indication: MIGRAINE
     Route: 065
  4. CYPROHEPTADINE. [Suspect]
     Active Substance: CYPROHEPTADINE
     Indication: MIGRAINE
     Route: 065
  5. GABAPENTIN. [Concomitant]
     Active Substance: GABAPENTIN
     Indication: MIGRAINE
     Route: 065

REACTIONS (6)
  - Drug intolerance [Recovered/Resolved]
  - Periorbital oedema [Recovered/Resolved]
  - Drug ineffective for unapproved indication [Recovered/Resolved]
  - Muscle spasms [Recovered/Resolved]
  - Anaphylactic reaction [Recovered/Resolved]
  - Periorbital swelling [Recovered/Resolved]
